FAERS Safety Report 5322045-X (Version None)
Quarter: 2007Q2

REPORT INFORMATION
  Report Type: 
  Country: None (occurrence: None)
  Receive Date: 20070507
  Receipt Date: 20070412
  Transmission Date: 20071010
  Serious: Yes (Death)
  Sender: FDA-Public Use
  Company Number: 6032097

PATIENT
  Age: 59 Year
  Sex: Male

DRUGS (5)
  1. CISPLATINE MERCK (CONCENTRATE FOR SOLUTION FOR INFUSION) (CISPLATIN) [Suspect]
     Indication: LUNG CARCINOMA CELL TYPE UNSPECIFIED STAGE 0
     Dosage: 1 ONCE (1 IN 1 ONCE)
     Route: 042
     Dates: start: 20070222, end: 20070222
  2. ETOPOSIDE [Suspect]
     Indication: LUNG CARCINOMA CELL TYPE UNSPECIFIED STAGE 0
     Dosage: 1 ONCE 175 MG (175 MG, 1 IN 1 ONCE)
     Route: 042
     Dates: start: 20070221, end: 20070221
  3. SOLU-MEDROL [Concomitant]
  4. ZOPHREN (2 MILLIGRAM/MILLILITERS, SOLUTION FOR INJECTION) (ONDANSETRON [Concomitant]
  5. MANNITOL SERB (20 PERCENT, SOLUTION FOR INJECTION) (MANNITOL) [Concomitant]

REACTIONS (3)
  - ACUTE MYOCARDIAL INFARCTION [None]
  - CARDIAC ARREST [None]
  - VENTRICLE RUPTURE [None]
